FAERS Safety Report 6121026-6 (Version None)
Quarter: 2009Q1

REPORT INFORMATION
  Report Type: 
  Country: None (occurrence: None)
  Receive Date: 20090317
  Receipt Date: 20090313
  Transmission Date: 20090719
  Serious: Yes (Death, Hospitalization, Other)
  Sender: FDA-Public Use
  Company Number: US-CELGENEUS-163-21880-09020069

PATIENT
  Sex: Male

DRUGS (2)
  1. REVLIMID [Suspect]
     Indication: MULTIPLE MYELOMA
     Route: 048
     Dates: start: 20081111, end: 20081101
  2. REVLIMID [Suspect]
     Route: 048
     Dates: start: 20080414, end: 20080701

REACTIONS (2)
  - INTESTINAL OBSTRUCTION [None]
  - MULTIPLE MYELOMA [None]
